FAERS Safety Report 16063925 (Version 1)
Quarter: 2019Q1

REPORT INFORMATION
  Report Type: Spontaneous
  Country: GR (occurrence: GR)
  Receive Date: 20190312
  Receipt Date: 20190312
  Transmission Date: 20190418
  Serious: Yes (Hospitalization)
  Sender: FDA-Public Use
  Company Number: GR-JNJFOC-20181043320

PATIENT
  Age: 82 Year
  Sex: Female

DRUGS (5)
  1. VINCRISTINE [Suspect]
     Active Substance: VINCRISTINE
     Indication: NON-HODGKIN^S LYMPHOMA STAGE II
     Dosage: ADMINISTERED EVERY 21 DAYS
     Route: 042
  2. PREDNISOLONE. [Suspect]
     Active Substance: PREDNISOLONE
     Indication: NON-HODGKIN^S LYMPHOMA STAGE II
     Dosage: ON DAYS 1 TO 5, ADMINISTERED EVERY 21 DAYS
     Route: 048
  3. RITUXIMAB. [Suspect]
     Active Substance: RITUXIMAB
     Indication: NON-HODGKIN^S LYMPHOMA STAGE II
     Dosage: ON DAY 1; ADMINISTERED EVERY 21 DAYS
     Route: 042
  4. DOXORUBICIN HYDROCHLORIDE. [Suspect]
     Active Substance: DOXORUBICIN HYDROCHLORIDE
     Indication: NON-HODGKIN^S LYMPHOMA STAGE II
     Dosage: ADMINISTERED EVERY 21 DAYS
     Route: 042
  5. CYCLOPHOSPHAMIDE. [Suspect]
     Active Substance: CYCLOPHOSPHAMIDE
     Indication: NON-HODGKIN^S LYMPHOMA STAGE II
     Dosage: ADMINISTERED EVERY 21 DAYS
     Route: 042

REACTIONS (3)
  - Product use in unapproved indication [Unknown]
  - Pneumatosis intestinalis [Unknown]
  - Off label use [Unknown]
